FAERS Safety Report 4726766-9 (Version None)
Quarter: 2005Q3

REPORT INFORMATION
  Report Type: 
  Country: None (occurrence: None)
  Receive Date: 20050725
  Receipt Date: 20050420
  Transmission Date: 20060218
  Serious: No
  Sender: FDA-Public Use
  Company Number: USA050496231

PATIENT
  Age: 58 Year
  Sex: Male

DRUGS (5)
  1. STRATTERA [Suspect]
     Indication: ATTENTION DEFICIT/HYPERACTIVITY DISORDER
     Dosage: 25 MG DAY
     Dates: start: 20050413
  2. WELLBUTRIN [Concomitant]
  3. REMERON (MIRTAZAPINE ORIFARM) [Concomitant]
  4. LIPITOR [Concomitant]
  5. AMBIEN [Concomitant]

REACTIONS (7)
  - ABNORMAL DREAMS [None]
  - ANTISOCIAL BEHAVIOUR [None]
  - DEPRESSION [None]
  - DRY MOUTH [None]
  - ERECTILE DYSFUNCTION [None]
  - INSOMNIA [None]
  - SOMNOLENCE [None]
